FAERS Safety Report 9750737 (Version 1)
Quarter: 2013Q4

REPORT INFORMATION
  Report Type: Spontaneous
  Country: US (occurrence: US)
  Receive Date: 20131212
  Receipt Date: 20131212
  Transmission Date: 20140711
  Serious: No
  Sender: FDA-Public Use
  Company Number: US-BIOGENIDEC-2013BI094046

PATIENT
  Sex: Male
  Weight: 76 kg

DRUGS (5)
  1. TECFIDERA [Suspect]
     Indication: PRODUCT USED FOR UNKNOWN INDICATION
  2. PROZAC [Concomitant]
  3. PERCOCET [Concomitant]
  4. ASPIRIN ADLT [Concomitant]
  5. BACLOFEN [Concomitant]

REACTIONS (7)
  - Fatigue [Unknown]
  - Visual impairment [Unknown]
  - Prescribed underdose [Unknown]
  - Vomiting [Unknown]
  - Flushing [Unknown]
  - Erythema [Unknown]
  - Diarrhoea [Unknown]
